FAERS Safety Report 11729437 (Version 1)
Quarter: 2015Q4

REPORT INFORMATION
  Report Type: Spontaneous
  Country: US (occurrence: US)
  Receive Date: 20151112
  Receipt Date: 20151112
  Transmission Date: 20160304
  Serious: No
  Sender: FDA-Public Use
  Company Number: US-PERRIGO-14US012104

PATIENT
  Age: 53 Year
  Sex: Female
  Weight: 86.17 kg

DRUGS (2)
  1. NICOTINE POLACRILEX [Suspect]
     Active Substance: NICOTINE
     Dosage: 4 MG, QD
     Route: 002
     Dates: start: 20141127
  2. NICOTINE POLACRILEX [Suspect]
     Active Substance: NICOTINE
     Indication: SMOKING CESSATION THERAPY
     Dosage: 4 MG, EVERY 1 TO 2 HOURS
     Route: 002
     Dates: start: 20140929, end: 20141122

REACTIONS (2)
  - Inappropriate schedule of drug administration [Unknown]
  - Hiccups [Unknown]

NARRATIVE: CASE EVENT DATE: 20140929
